FAERS Safety Report 5848037-X (Version None)
Quarter: 2008Q3

REPORT INFORMATION
  Report Type: 
  Country: None (occurrence: None)
  Receive Date: 20080814
  Receipt Date: 20080804
  Transmission Date: 20090109
  Serious: Yes (Death)
  Sender: FDA-Public Use
  Company Number: 2008AP001786

PATIENT
  Age: 1 Hour

DRUGS (5)
  1. CITALOPRAM HYDROBROMIDE [Suspect]
     Indication: ANXIETY
     Dosage: 40 MG; TRPL
     Route: 064
     Dates: start: 20070124, end: 20080423
  2. CITALOPRAM HYDROBROMIDE [Suspect]
     Indication: DEPRESSION
     Dosage: 40 MG; TRPL
     Route: 064
     Dates: start: 20070124, end: 20080423
  3. PROPRANOLOL [Suspect]
     Indication: ANXIETY
     Dosage: 10 MG; TID TRPL
     Route: 064
     Dates: start: 20070828
  4. DICLOFENAC SODIUM [Concomitant]
  5. FOLIC ACID [Concomitant]

REACTIONS (2)
  - ANENCEPHALY [None]
  - MATERNAL DRUGS AFFECTING FOETUS [None]
